FAERS Safety Report 17722470 (Version 1)
Quarter: 2020Q2

REPORT INFORMATION
  Report Type: Spontaneous
  Country: US (occurrence: US)
  Receive Date: 20200429
  Receipt Date: 20200429
  Transmission Date: 20200714
  Serious: No
  Sender: FDA-Public Use
  Company Number: US-PFIZER INC-2020064609

PATIENT
  Age: 60 Year
  Sex: Female

DRUGS (1)
  1. INLYTA [Suspect]
     Active Substance: AXITINIB
     Indication: RENAL CANCER
     Dosage: 7 MG, DAILY, [5 MG ALONG WITH TWO 1 MG BY MOUTH BID, TOTAL 7 MG 1 DAY]
     Route: 048

REACTIONS (2)
  - Oral pain [Unknown]
  - Dry mouth [Unknown]
